FAERS Safety Report 15407343 (Version 1)
Quarter: 2018Q3

REPORT INFORMATION
  Report Type: Spontaneous
  Country: US (occurrence: US)
  Receive Date: 20180913
  Receipt Date: 20180913
  Transmission Date: 20181010
  Serious: Yes (Hospitalization)
  Sender: FDA-Public Use
  Company Number: None

PATIENT
  Age: 59 Year
  Sex: Female
  Weight: 48.5 kg

DRUGS (13)
  1. ADALIMUMAB [Concomitant]
     Active Substance: ADALIMUMAB
  2. MULTIVITAMIN, QD [Concomitant]
  3. PANTOPRAZOLE 40 MG, BID [Concomitant]
  4. PHYTONADIONE 10MG, QD [Concomitant]
  5. TIZANIDINE 4 MG, Q8HRS [Concomitant]
  6. HUMIRA [Suspect]
     Active Substance: ADALIMUMAB
  7. CALCIUM CARBONATE?VITAMIN D 600?400 MG?UNITS, QD [Concomitant]
  8. FUROSEMIDE 1? MG, QD [Concomitant]
  9. CHOLECALCIFEROL 1000 UNITS, QD [Concomitant]
  10. CYANOCOBALAMIN 1000 MCG/ML Q30DAYS [Concomitant]
  11. HYDROXYZINE HCL 10MG, QD [Concomitant]
  12. ONDANSETRON 4MG,  Q8HRS [Concomitant]
  13. COPPER GLUCONATE 2 MG, QD [Concomitant]

REACTIONS (5)
  - Hypoalbuminaemia [None]
  - Vitamin D deficiency [None]
  - Oedema peripheral [None]
  - Nitrite urine present [None]
  - Anaemia [None]

NARRATIVE: CASE EVENT DATE: 20171218
